FAERS Safety Report 9276545 (Version 3)
Quarter: 2015Q2

REPORT INFORMATION
  Report Type: Spontaneous
  Country: US (occurrence: US)
  Receive Date: 20130507
  Receipt Date: 20150524
  Transmission Date: 20150821
  Serious: Yes (Other)
  Sender: FDA-Public Use
  Company Number: US-JNJFOC-20130500501

PATIENT
  Age: 50 Year
  Sex: Female
  Weight: 52.16 kg

DRUGS (6)
  1. DURAGESIC [Suspect]
     Active Substance: FENTANYL
     Indication: BACK PAIN
     Dosage: EVERY 36-48
     Route: 062
     Dates: end: 20130225
  2. DURAGESIC [Suspect]
     Active Substance: FENTANYL
     Indication: BACK PAIN
     Dosage: EVERY 36-48 HOURS
     Route: 062
     Dates: start: 2003
  3. OXYCODONE [Concomitant]
     Active Substance: OXYCODONE
     Indication: BACK PAIN
     Route: 048
     Dates: start: 2004
  4. VICODIN [Concomitant]
     Active Substance: ACETAMINOPHEN\HYDROCODONE BITARTRATE
     Indication: BACK PAIN
     Dosage: 750/7.5MG/TABLET
     Route: 048
     Dates: start: 2003
  5. LIDODERM [Concomitant]
     Active Substance: LIDOCAINE
     Indication: SCIATICA
     Route: 062
     Dates: start: 2003
  6. DURAGESIC [Suspect]
     Active Substance: FENTANYL
     Indication: BACK PAIN
     Dosage: EVERY 36-48
     Route: 062
     Dates: start: 20130226

REACTIONS (6)
  - Product adhesion issue [Unknown]
  - Wrong technique in drug usage process [Unknown]
  - Body height decreased [Not Recovered/Not Resolved]
  - Inappropriate schedule of drug administration [Not Recovered/Not Resolved]
  - Atypical pneumonia [Not Recovered/Not Resolved]
  - Wrong technique in drug usage process [Not Recovered/Not Resolved]

NARRATIVE: CASE EVENT DATE: 2003
